FAERS Safety Report 25627447 (Version 1)
Quarter: 2025Q3

REPORT INFORMATION
  Report Type: Spontaneous
  Country: US (occurrence: None)
  Receive Date: 20250730
  Receipt Date: 20250730
  Transmission Date: 20251020
  Serious: No
  Sender: FDA-CTU
  Company Number: None

PATIENT
  Age: 63 Year
  Sex: Female
  Weight: 59.4 kg

DRUGS (8)
  1. MIEBO [Suspect]
     Active Substance: PERFLUOROHEXYLOCTANE
     Indication: Dry eye
     Dosage: 1 DROP 4 TIMES A DAY OPHTHALMIC?
     Route: 047
     Dates: start: 20250610
  2. ATORVASTATIN [Concomitant]
     Active Substance: ATORVASTATIN
  3. amlopodipine, [Concomitant]
  4. METOPROLOL [Concomitant]
     Active Substance: METOPROLOL
  5. VITAMIN D [Concomitant]
     Active Substance: VITAMIN D NOS
  6. blink eye drop [Concomitant]
  7. ALIGN [Concomitant]
     Active Substance: BIFIDOBACTERIUM LONGUM SUBSP. INFANTIS
  8. oasis eye drop [Concomitant]

REACTIONS (2)
  - Asthenopia [None]
  - Product packaging quantity issue [None]

NARRATIVE: CASE EVENT DATE: 20250614
